APPROVED DRUG PRODUCT: THALLOUS CHLORIDE TL 201
Active Ingredient: THALLOUS CHLORIDE TL-201
Strength: 2mCi/ML **Federal Register determination that product was not discontinued or withdrawn for safety or effectiveness reasons**
Dosage Form/Route: INJECTABLE;INTRAVENOUS
Application: N017806 | Product #002
Applicant: LANTHEUS MEDICAL IMAGING INC
Approved: Oct 9, 1998 | RLD: Yes | RS: No | Type: DISCN